FAERS Safety Report 13041693 (Version 1)
Quarter: 2016Q4

REPORT INFORMATION
  Report Type: Spontaneous
  Country: US (occurrence: US)
  Receive Date: 20161219
  Receipt Date: 20161219
  Transmission Date: 20170207
  Serious: No
  Sender: FDA-Public Use
  Company Number: US-ROCHE-1400488

PATIENT
  Age: 9 Year
  Sex: Male

DRUGS (1)
  1. VEMURAFENIB [Suspect]
     Active Substance: VEMURAFENIB
     Indication: GLIOBLASTOMA MULTIFORME
     Route: 048

REACTIONS (5)
  - Hair texture abnormal [Unknown]
  - Off label use [Unknown]
  - Rash follicular [Recovered/Resolved]
  - Alopecia [Unknown]
  - Madarosis [Unknown]
